FAERS Safety Report 7609900-2 (Version None)
Quarter: 2011Q3

REPORT INFORMATION
  Report Type: 
  Country: None (occurrence: None)
  Receive Date: 20110714
  Receipt Date: 20110705
  Transmission Date: 20111222
  Serious: Yes (Hospitalization, Other)
  Sender: FDA-Public Use
  Company Number: US-ELI_LILLY_AND_COMPANY-US201107002027

PATIENT
  Sex: Female

DRUGS (2)
  1. HUMALOG [Suspect]
     Indication: DIABETES MELLITUS
     Dosage: 37 U, EACH MORNING
  2. HUMALOG [Suspect]
     Dosage: 27 U, EACH EVENING

REACTIONS (2)
  - THROMBOSIS [None]
  - BLINDNESS [None]
